FAERS Safety Report 23155931 (Version 2)
Quarter: 2023Q4

REPORT INFORMATION
  Report Type: Spontaneous
  Country: US (occurrence: US)
  Receive Date: 20231107
  Receipt Date: 20231219
  Transmission Date: 20240109
  Serious: Yes (Death, Hospitalization)
  Sender: FDA-Public Use
  Company Number: US-ANIPHARMA-2023-US-036704

PATIENT
  Age: 95 Year
  Sex: Female

DRUGS (1)
  1. CORTICOTROPIN [Suspect]
     Active Substance: CORTICOTROPIN
     Indication: Nephrotic syndrome
     Dosage: INJECT 40 UNITS (0.5ML) SUBCUTANEOUSLY TWO TIMES A WEEK AS DIRECTED. *DISCARD 28 DAYS AFTER FIRS
     Route: 058
     Dates: start: 202212

REACTIONS (5)
  - Hospitalisation [Unknown]
  - Contraindicated product administered [Not Recovered/Not Resolved]
  - Urinary tract infection [Unknown]
  - Decubitus ulcer [Unknown]
  - Death [Fatal]

NARRATIVE: CASE EVENT DATE: 20231211
